FAERS Safety Report 4334052-4 (Version None)
Quarter: 2004Q2

REPORT INFORMATION
  Report Type: 
  Country: None (occurrence: None)
  Receive Date: 20040402
  Receipt Date: 20490318
  Transmission Date: 20050107
  Serious: Yes (Death, Hospitalization)
  Sender: FDA-Public Use
  Company Number: 9947277

PATIENT
  Age: 85 Year
  Sex: Female

DRUGS (5)
  1. SERTRALINE (SERTRALINE) [Suspect]
     Indication: DEPRESSION
     Dosage: 50 MG (DAILY), ORAL
     Route: 048
     Dates: start: 19981001, end: 19991001
  2. BROMAZEPAM (BROMAZEPAM) [Concomitant]
  3. MULTIVITAMIN [Concomitant]
  4. AMLODIPINE [Concomitant]
  5. PIROXICAM [Concomitant]

REACTIONS (7)
  - ASTHENIA [None]
  - GASTRIC HAEMORRHAGE [None]
  - GASTRIC ULCER HAEMORRHAGE [None]
  - GASTROINTESTINAL INFECTION [None]
  - HYPOTENSION [None]
  - PNEUMONIA [None]
  - RESPIRATORY ARREST [None]
